FAERS Safety Report 18485868 (Version 1)
Quarter: 2020Q4

REPORT INFORMATION
  Report Type: Spontaneous
  Country: US (occurrence: US)
  Receive Date: 20201110
  Receipt Date: 20201110
  Transmission Date: 20210114
  Serious: Yes (Hospitalization)
  Sender: FDA-Public Use
  Company Number: None

PATIENT
  Age: 47 Year
  Sex: Female

DRUGS (11)
  1. ALBUTEROL. [Concomitant]
     Active Substance: ALBUTEROL
  2. LORATADINE. [Concomitant]
     Active Substance: LORATADINE
  3. TOBRAMYCIN. [Concomitant]
     Active Substance: TOBRAMYCIN
  4. LINEZOLID. [Concomitant]
     Active Substance: LINEZOLID
  5. AMLORIDE [Concomitant]
  6. ENOXAPARIN [Concomitant]
     Active Substance: ENOXAPARIN
  7. OMEPRAZOLE. [Concomitant]
     Active Substance: OMEPRAZOLE
  8. VITAMIN D [Concomitant]
     Active Substance: VITAMIN D NOS
  9. SYMBICORT [Concomitant]
     Active Substance: BUDESONIDE\FORMOTEROL FUMARATE DIHYDRATE
  10. PULMOZYME [Suspect]
     Active Substance: DORNASE ALFA
     Indication: CYSTIC FIBROSIS LUNG
     Dosage: ?          OTHER ROUTE:INHALE?
     Route: 055
     Dates: start: 20171006
  11. CREFON [Concomitant]

REACTIONS (1)
  - Physical examination [None]

NARRATIVE: CASE EVENT DATE: 20201104
